FAERS Safety Report 14372181 (Version 1)
Quarter: 2018Q1

REPORT INFORMATION
  Report Type: Spontaneous
  Country: SG (occurrence: SG)
  Receive Date: 20180110
  Receipt Date: 20180110
  Transmission Date: 20180509
  Serious: Yes (Hospitalization)
  Sender: FDA-Public Use
  Company Number: SG-MYLANLABS-2017M1083830

PATIENT
  Age: 72 Year
  Sex: Male

DRUGS (11)
  1. TRIMETAZIDINE [Concomitant]
     Active Substance: TRIMETAZIDINE
     Indication: PRODUCT USED FOR UNKNOWN INDICATION
     Dosage: 20 MG, UNK
     Route: 065
  2. GLIPIZIDE. [Concomitant]
     Active Substance: GLIPIZIDE
     Indication: PRODUCT USED FOR UNKNOWN INDICATION
     Dosage: 5 MG, UNK
     Route: 065
  3. SITAGLIPTIN [Concomitant]
     Active Substance: SITAGLIPTIN
     Indication: PRODUCT USED FOR UNKNOWN INDICATION
     Dosage: 50 MG/DAY
     Route: 065
  4. VENLAFAXINE [Suspect]
     Active Substance: VENLAFAXINE HYDROCHLORIDE
     Indication: MAJOR DEPRESSION
     Dosage: 75 MG/DAY
     Route: 065
  5. FLUVOXAMINE [Concomitant]
     Active Substance: FLUVOXAMINE
     Indication: DEPRESSION
     Dosage: 75 MG/DAY
     Route: 065
  6. FLUVOXAMINE [Concomitant]
     Active Substance: FLUVOXAMINE
     Dosage: MAINTAINED ON 150 MG
     Route: 065
  7. OLANZAPINE. [Concomitant]
     Active Substance: OLANZAPINE
     Indication: DEPRESSION
     Dosage: 10 MG/DAY
     Route: 065
  8. SIMVASTATIN. [Concomitant]
     Active Substance: SIMVASTATIN
     Indication: PRODUCT USED FOR UNKNOWN INDICATION
     Dosage: 10 MG/DAY
     Route: 065
  9. METFORMIN [Concomitant]
     Active Substance: METFORMIN HYDROCHLORIDE
     Indication: PRODUCT USED FOR UNKNOWN INDICATION
     Dosage: 850 MG; THREE TIMES DAILY
     Route: 065
  10. ENALAPRIL [Concomitant]
     Active Substance: ENALAPRIL
     Indication: PRODUCT USED FOR UNKNOWN INDICATION
     Dosage: 2.5 MG; THREE TIMES DAILY
     Route: 065
  11. ISOSORBIDE MONONITRATE. [Concomitant]
     Active Substance: ISOSORBIDE MONONITRATE
     Indication: PRODUCT USED FOR UNKNOWN INDICATION
     Dosage: 30 MG/DAY
     Route: 065

REACTIONS (2)
  - Withdrawal syndrome [Recovered/Resolved]
  - Mania [Recovered/Resolved]
